FAERS Safety Report 9065196 (Version 1)
Quarter: 2013Q1

REPORT INFORMATION
  Report Type: Spontaneous
  Country: US (occurrence: US)
  Receive Date: 20130130
  Receipt Date: 20130130
  Transmission Date: 20140127
  Serious: Yes (Hospitalization)
  Sender: FDA-Public Use
  Company Number: US-SHIRE-ALL1-2013-00418

PATIENT
  Sex: Female
  Weight: 47.62 kg

DRUGS (2)
  1. LIALDA [Suspect]
     Indication: COLITIS ULCERATIVE
     Dosage: 4.8 , 1X/DAY:QD (FOUR 1.2 G TABLETS DAILY)
     Route: 048
     Dates: start: 2010
  2. LIALDA [Suspect]
     Indication: CROHN^S DISEASE
     Dosage: 2.4 G (TWO, 1.2 G TABLETS), 1X/DAY:QD
     Route: 048
     Dates: start: 201001, end: 2010

REACTIONS (3)
  - Infection [Recovered/Resolved]
  - Crohn^s disease [Recovered/Resolved]
  - Colitis [Recovered/Resolved]
